FAERS Safety Report 7937331-4 (Version None)
Quarter: 2011Q4

REPORT INFORMATION
  Report Type: 
  Country: None (occurrence: None)
  Receive Date: 20111123
  Receipt Date: 20110906
  Transmission Date: 20120403
  Serious: No
  Sender: FDA-Public Use
  Company Number: US-BAYER-2011-088918

PATIENT
  Sex: Female

DRUGS (6)
  1. GLUCOSAMINE [Concomitant]
  2. ALEVE (CAPLET) [Suspect]
     Dosage: 2 DF, BID
     Dates: start: 20110101, end: 20110401
  3. CHONDROITIN [Concomitant]
  4. THERAGRAN-M [Concomitant]
  5. ALEVE (CAPLET) [Suspect]
     Indication: ARTHRITIS
     Dosage: 2 DF, QD
  6. ALEVE (CAPLET) [Suspect]
     Dosage: 1 DF, BID

REACTIONS (1)
  - BLOOD PRESSURE INCREASED [None]
